FAERS Safety Report 19977852 (Version 1)
Quarter: 2021Q4

REPORT INFORMATION
  Report Type: Spontaneous
  Country: US (occurrence: US)
  Receive Date: 20211020
  Receipt Date: 20211020
  Transmission Date: 20220303
  Serious: Yes (Hospitalization)
  Sender: FDA-Public Use
  Company Number: None

PATIENT
  Age: 42 Year
  Sex: Female
  Weight: 118.3 kg

DRUGS (13)
  1. AIMOVIG [Suspect]
     Active Substance: ERENUMAB-AOOE
     Indication: Migraine
     Dates: start: 20210702, end: 20210710
  2. DULAGLUTIDE [Suspect]
     Active Substance: DULAGLUTIDE
     Indication: Type 2 diabetes mellitus
     Dosage: ?          OTHER FREQUENCY:EVERY 7 DAYS;
     Route: 058
     Dates: start: 20210707, end: 20210710
  3. ARIPIPRAZOLE [Concomitant]
     Active Substance: ARIPIPRAZOLE
  4. ASPIRIN [Concomitant]
     Active Substance: ASPIRIN
  5. CLONAZEPAM [Concomitant]
     Active Substance: CLONAZEPAM
  6. MELATONIN [Concomitant]
     Active Substance: MELATONIN
  7. NPH INSULIN [Concomitant]
     Active Substance: INSULIN BEEF
  8. INSULIN NOS [Concomitant]
     Active Substance: INSULIN NOS
  9. ATORVASTATIN [Concomitant]
     Active Substance: ATORVASTATIN
  10. QUETIAPINE [Concomitant]
     Active Substance: QUETIAPINE
  11. SUMATRIPTAN [Concomitant]
     Active Substance: SUMATRIPTAN
  12. TRAZODONE [Concomitant]
     Active Substance: TRAZODONE HYDROCHLORIDE
  13. VALACYCLOVIR [Concomitant]
     Active Substance: VALACYCLOVIR HYDROCHLORIDE

REACTIONS (1)
  - Impaired gastric emptying [None]

NARRATIVE: CASE EVENT DATE: 20210710
